FAERS Safety Report 8484571-4 (Version None)
Quarter: 2012Q3

REPORT INFORMATION
  Report Type: 
  Country: None (occurrence: None)
  Receive Date: 20120703
  Receipt Date: 20120420
  Transmission Date: 20120928
  Serious: No
  Sender: FDA-Public Use
  Company Number: US-TEVA-322984USA

PATIENT
  Sex: Male
  Weight: 104.42 kg

DRUGS (3)
  1. NUVIGIL [Suspect]
     Indication: SLEEP APNOEA SYNDROME
  2. NUVIGIL [Suspect]
     Indication: NARCOLEPSY
     Dosage: 250 MILLIGRAM;
     Route: 048
     Dates: start: 20110901
  3. HYZAAR [Concomitant]
     Indication: HYPERTENSION
     Route: 048

REACTIONS (4)
  - DRUG EFFECT DELAYED [None]
  - FUNGAL INFECTION [None]
  - INCORRECT DOSE ADMINISTERED [None]
  - DRUG INEFFECTIVE [None]
